FAERS Safety Report 8555642-9 (Version None)
Quarter: 2012Q3

REPORT INFORMATION
  Report Type: 
  Country: None (occurrence: None)
  Receive Date: 20120731
  Receipt Date: 20120717
  Transmission Date: 20120928
  Serious: Yes (Other)
  Sender: FDA-Public Use
  Company Number: US-ELI_LILLY_AND_COMPANY-US201207005591

PATIENT
  Age: 59 Year
  Sex: Female

DRUGS (6)
  1. COUMADIN [Concomitant]
  2. CYMBALTA [Suspect]
     Dosage: 30 MG, UNKNOWN
  3. CYMBALTA [Suspect]
     Dosage: 60 MG, UNKNOWN
  4. CYMBALTA [Suspect]
     Indication: BACK PAIN
     Dosage: 60 MG, UNKNOWN
     Dates: start: 20111201
  5. VICODIN [Concomitant]
  6. VAGIFEM [Concomitant]

REACTIONS (23)
  - STOMATITIS [None]
  - GOITRE [None]
  - EATING DISORDER SYMPTOM [None]
  - THYROID NEOPLASM [None]
  - FEELING HOT [None]
  - TONGUE BLISTERING [None]
  - HYPERHIDROSIS [None]
  - BACTERIAL INFECTION [None]
  - NECK PAIN [None]
  - THROAT TIGHTNESS [None]
  - FEELING JITTERY [None]
  - TACHYPHRENIA [None]
  - NAUSEA [None]
  - APPENDICITIS [None]
  - BLOOD CHOLESTEROL INCREASED [None]
  - OOPHORECTOMY [None]
  - WEIGHT INCREASED [None]
  - OROPHARYNGEAL PAIN [None]
  - ANXIETY [None]
  - ABDOMINAL PAIN UPPER [None]
  - WEIGHT DECREASED [None]
  - LOW DENSITY LIPOPROTEIN INCREASED [None]
  - PILOERECTION [None]
